FAERS Safety Report 7595562-X (Version None)
Quarter: 2011Q3

REPORT INFORMATION
  Report Type: 
  Country: None (occurrence: None)
  Receive Date: 20110707
  Receipt Date: 20110628
  Transmission Date: 20111222
  Serious: Yes (Hospitalization, Other)
  Sender: FDA-Public Use
  Company Number: CA-GLAXOSMITHKLINE-A0926465A

PATIENT
  Sex: Female

DRUGS (6)
  1. XELODA [Suspect]
     Indication: PRODUCT USED FOR UNKNOWN INDICATION
     Route: 065
  2. IMOVANE [Concomitant]
  3. HYDROCHLOROTHIAZIDE [Concomitant]
  4. TYKERB [Suspect]
     Indication: BREAST CANCER METASTATIC
     Dosage: 1250MG PER DAY
     Route: 048
     Dates: start: 20110218, end: 20110628
  5. FRAGMIN [Concomitant]
  6. TRAMADOL HCL [Concomitant]

REACTIONS (10)
  - SKIN DISCOLOURATION [None]
  - COUGH [None]
  - FATIGUE [None]
  - PNEUMONIA [None]
  - RASH PAPULAR [None]
  - RASH PRURITIC [None]
  - LUNG DISORDER [None]
  - NEOPLASM MALIGNANT [None]
  - RASH [None]
  - RADIATION SKIN INJURY [None]
